FAERS Safety Report 19643457 (Version 9)
Quarter: 2022Q3

REPORT INFORMATION
  Report Type: Report from Study
  Country: US (occurrence: US)
  Receive Date: 20210730
  Receipt Date: 20220705
  Transmission Date: 20221027
  Serious: Yes (Hospitalization)
  Sender: FDA-Public Use
  Company Number: US-NOVARTISPH-NVSC2021US169941

PATIENT
  Sex: Female

DRUGS (3)
  1. ENTRESTO [Suspect]
     Active Substance: SACUBITRIL\VALSARTAN
     Indication: Product used for unknown indication
     Dosage: 0.5 DOSAGE FORM, BID(24/26 MG)
     Route: 048
     Dates: start: 20210711
  2. ENTRESTO [Suspect]
     Active Substance: SACUBITRIL\VALSARTAN
     Dosage: 1 DOSAGE FORM, BID(24/26 MG)
     Route: 048
  3. ENTRESTO [Suspect]
     Active Substance: SACUBITRIL\VALSARTAN
     Dosage: 0.5 DOSAGE FORM, BID(24/26 MG)
     Route: 048

REACTIONS (10)
  - COVID-19 [Unknown]
  - Bronchitis chronic [Unknown]
  - Nasopharyngitis [Unknown]
  - Cough [Unknown]
  - Prescribed underdose [Not Recovered/Not Resolved]
  - Blood glucose decreased [Unknown]
  - Nasal congestion [Unknown]
  - Arthritis [Unknown]
  - Product dose omission issue [Unknown]
  - Wrong technique in product usage process [Not Recovered/Not Resolved]
